FAERS Safety Report 15565245 (Version 1)
Quarter: 2018Q4

REPORT INFORMATION
  Report Type: Spontaneous
  Country: PL (occurrence: PL)
  Receive Date: 20181030
  Receipt Date: 20181030
  Transmission Date: 20190205
  Serious: Yes (Other)
  Sender: FDA-Public Use
  Company Number: PHHY2018PL134799

PATIENT
  Sex: Female
  Weight: 1.57 kg

DRUGS (2)
  1. METHYLDOPA. [Suspect]
     Active Substance: METHYLDOPA
     Indication: FOETAL EXPOSURE DURING PREGNANCY
     Dosage: MATERNAL DOSE: 250 MG (5 TIMES)
     Route: 064
  2. METOPROLOL. [Suspect]
     Active Substance: METOPROLOL
     Indication: FOETAL EXPOSURE DURING PREGNANCY
     Dosage: MATERNAL DOSE: 2X25MG
     Route: 064

REACTIONS (6)
  - Foetal growth restriction [Recovering/Resolving]
  - Premature baby [Unknown]
  - Intraventricular haemorrhage [Recovering/Resolving]
  - Low birth weight baby [Unknown]
  - Heart rate increased [Recovering/Resolving]
  - Foetal exposure during pregnancy [Unknown]
